FAERS Safety Report 12830634 (Version 3)
Quarter: 2018Q1

REPORT INFORMATION
  Report Type: Spontaneous
  Country: FR (occurrence: FR)
  Receive Date: 20161007
  Receipt Date: 20180307
  Transmission Date: 20180508
  Serious: Yes (Hospitalization)
  Sender: FDA-Public Use
  Company Number: FR-ASTRAZENECA-2016SF05173

PATIENT
  Age: 50 Year
  Sex: Female
  Weight: 135 kg

DRUGS (12)
  1. LASILIX FAIBLE [Suspect]
     Active Substance: FUROSEMIDE
     Dosage: 20.0MG UNKNOWN
     Route: 048
     Dates: start: 20160708, end: 20160826
  2. AMOXICILLIN. [Suspect]
     Active Substance: AMOXICILLIN
     Indication: THERAPEUTIC PROCEDURE
     Route: 048
     Dates: start: 20160602, end: 20160616
  3. PAROXETINE. [Concomitant]
     Active Substance: PAROXETINE
  4. AMOXICILLIN. [Suspect]
     Active Substance: AMOXICILLIN
     Indication: THERAPEUTIC PROCEDURE
     Route: 048
     Dates: start: 20160720, end: 20160727
  5. INEXIUM [Suspect]
     Active Substance: ESOMEPRAZOLE
     Dosage: 40.0MG UNKNOWN
     Route: 048
     Dates: start: 20160708, end: 20160826
  6. EBASTINE [Suspect]
     Active Substance: EBASTINE
     Indication: URTICARIA
     Route: 065
     Dates: start: 20160602, end: 20160820
  7. CLAVULANIC ACID [Suspect]
     Active Substance: CLAVULANIC ACID
     Indication: THERAPEUTIC PROCEDURE
     Route: 065
     Dates: start: 20160302, end: 20160826
  8. LOSARTAN. [Concomitant]
     Active Substance: LOSARTAN
  9. DECAPEPTYL [Suspect]
     Active Substance: TRIPTORELIN
     Indication: ANGIOMYXOMA
     Dosage: 4.0DF UNKNOWN
     Route: 030
     Dates: start: 201606, end: 20160727
  10. ATARAX [Suspect]
     Active Substance: HYDROXYZINE HYDROCHLORIDE
     Route: 065
     Dates: start: 201606, end: 20160616
  11. AMOXICILLIN. [Suspect]
     Active Substance: AMOXICILLIN
     Indication: THERAPEUTIC PROCEDURE
     Route: 048
     Dates: start: 20160825, end: 20160826
  12. ATARAX [Suspect]
     Active Substance: HYDROXYZINE HYDROCHLORIDE
     Route: 065
     Dates: start: 20160816, end: 20160826

REACTIONS (1)
  - Drug reaction with eosinophilia and systemic symptoms [Recovered/Resolved]

NARRATIVE: CASE EVENT DATE: 20160820
